FAERS Safety Report 9784159 (Version 2)
Quarter: 2014Q1

REPORT INFORMATION
  Report Type: Spontaneous
  Country: US (occurrence: US)
  Receive Date: 20131226
  Receipt Date: 20140217
  Transmission Date: 20141002
  Serious: No
  Sender: FDA-Public Use
  Company Number: US-BAYER-2013-158084

PATIENT
  Sex: Female

DRUGS (1)
  1. OCELLA [Suspect]
     Dosage: UNK
     Dates: start: 201308

REACTIONS (4)
  - Drug dose omission [None]
  - Abnormal withdrawal bleeding [Not Recovered/Not Resolved]
  - Fungal infection [Recovered/Resolved]
  - Drug dose omission [None]
